FAERS Safety Report 15396015 (Version 2)
Quarter: 2018Q3

REPORT INFORMATION
  Report Type: Spontaneous
  Country: BR (occurrence: BR)
  Receive Date: 20180918
  Receipt Date: 20180918
  Transmission Date: 20181010
  Serious: Yes (Other)
  Sender: FDA-Public Use
  Company Number: PHHY2018BR099946

PATIENT
  Sex: Male
  Weight: 90 kg

DRUGS (4)
  1. RITALINA [Suspect]
     Active Substance: METHYLPHENIDATE HYDROCHLORIDE
     Indication: DYSLEXIA
     Dosage: 1 DF, BID (1 IN THE MORNING AND AN AFTERNOON AND HEPORT HE USES A THIRD TABLET WHEN HE WAS GOING OU)
     Route: 048
     Dates: start: 2005
  2. RITALINA [Suspect]
     Active Substance: METHYLPHENIDATE HYDROCHLORIDE
     Indication: ATTENTION DEFICIT/HYPERACTIVITY DISORDER
  3. METFORMIN [Suspect]
     Active Substance: METFORMIN HYDROCHLORIDE
     Indication: PRODUCT USED FOR UNKNOWN INDICATION
     Dosage: UNK
     Route: 065
  4. GALVUS [Suspect]
     Active Substance: VILDAGLIPTIN
     Indication: PRODUCT USED FOR UNKNOWN INDICATION
     Dosage: UNK
     Route: 065

REACTIONS (2)
  - Diabetes mellitus [Recovering/Resolving]
  - Spinal osteoarthritis [Recovering/Resolving]
